FAERS Safety Report 22956852 (Version 3)
Quarter: 2023Q4

REPORT INFORMATION
  Report Type: Other
  Country: JP (occurrence: JP)
  Receive Date: 20230919
  Receipt Date: 20231031
  Transmission Date: 20240110
  Serious: Yes (Hospitalization, Other)
  Sender: FDA-Public Use
  Company Number: JP-ASTELLAS-2023JP005594

PATIENT
  Age: 87 Year
  Sex: Male
  Weight: 53 kg

DRUGS (4)
  1. PADCEV [Suspect]
     Active Substance: ENFORTUMAB VEDOTIN-EJFV
     Indication: Malignant neoplasm of renal pelvis
     Dosage: 77 MG (1.25 MG/KG), UNKNOWN FREQ.
     Route: 041
     Dates: start: 20230217, end: 20230511
  2. PADCEV [Suspect]
     Active Substance: ENFORTUMAB VEDOTIN-EJFV
     Dosage: 50 MG (1 MG/KG), UNKNOWN FREQ.
     Route: 041
     Dates: start: 20230512, end: 20230713
  3. PADCEV [Suspect]
     Active Substance: ENFORTUMAB VEDOTIN-EJFV
     Dosage: 40 MG (0.75 MG/KG), UNKNOWN FREQ.
     Route: 041
     Dates: start: 20230714
  4. BAVENCIO [Suspect]
     Active Substance: AVELUMAB
     Indication: Malignant neoplasm of renal pelvis
     Route: 041
     Dates: start: 20221124, end: 20230216

REACTIONS (2)
  - Enterocolitis [Recovered/Resolved]
  - Pulmonary toxicity [Not Recovered/Not Resolved]

NARRATIVE: CASE EVENT DATE: 20230313
